FAERS Safety Report 21755480 (Version 1)
Quarter: 2022Q4

REPORT INFORMATION
  Report Type: Spontaneous
  Country: MX (occurrence: MX)
  Receive Date: 20221220
  Receipt Date: 20221220
  Transmission Date: 20230113
  Serious: Yes (Hospitalization)
  Sender: FDA-Public Use
  Company Number: MX-BAYER-2022P030325

PATIENT
  Age: 53 Year
  Sex: Male

DRUGS (1)
  1. LAROTRECTINIB [Suspect]
     Active Substance: LAROTRECTINIB
     Indication: Malignant neoplasm of retina
     Dosage: 100 MG, BID
     Route: 048
     Dates: start: 20220907, end: 20221202

REACTIONS (2)
  - Malignant neoplasm of retina [None]
  - Vision blurred [None]
